FAERS Safety Report 11968834 (Version 1)
Quarter: 2016Q1

REPORT INFORMATION
  Report Type: Spontaneous
  Country: US (occurrence: None)
  Receive Date: 20160126
  Receipt Date: 20160126
  Transmission Date: 20160526
  Serious: Yes (Other)
  Sender: FDA-Public Use
  Company Number: None

PATIENT
  Age: 20 Year
  Sex: Female

DRUGS (1)
  1. CYCLOSPORINE 100 APOTEX [Suspect]
     Active Substance: CYCLOSPORINE
     Dosage: STRENGTH: 100

REACTIONS (1)
  - Hirsutism [None]

NARRATIVE: CASE EVENT DATE: 20160122
